FAERS Safety Report 20097292 (Version 1)
Quarter: 2021Q4

REPORT INFORMATION
  Report Type: Report from Study
  Country: DE (occurrence: DE)
  Receive Date: 20211122
  Receipt Date: 20211122
  Transmission Date: 20220303
  Serious: Yes (Hospitalization, Other)
  Sender: FDA-Public Use
  Company Number: DE-TAKEDA-DE201850499

PATIENT

DRUGS (11)
  1. TEDUGLUTIDE [Suspect]
     Active Substance: TEDUGLUTIDE
     Indication: Short-bowel syndrome
     Dosage: 3.3 MILLIGRAM (0.05 MG/KG DAILY DOSE), 7 DOSES PER WEEK
     Route: 065
     Dates: start: 20150615, end: 20170101
  2. TEDUGLUTIDE [Suspect]
     Active Substance: TEDUGLUTIDE
     Indication: Short-bowel syndrome
     Dosage: 3.3 MILLIGRAM (0.05 MG/KG DAILY DOSE), 7 DOSES PER WEEK
     Route: 065
     Dates: start: 20150615, end: 20170101
  3. TEDUGLUTIDE [Suspect]
     Active Substance: TEDUGLUTIDE
     Indication: Short-bowel syndrome
     Dosage: 3.3 MILLIGRAM (0.05 MG/KG DAILY DOSE), 7 DOSES PER WEEK
     Route: 065
     Dates: start: 20150615, end: 20170101
  4. TEDUGLUTIDE [Suspect]
     Active Substance: TEDUGLUTIDE
     Indication: Short-bowel syndrome
     Dosage: 3.3 MILLIGRAM (0.05 MG/KG DAILY DOSE), 7 DOSES PER WEEK
     Route: 065
     Dates: start: 20150615, end: 20170101
  5. TEDUGLUTIDE [Suspect]
     Active Substance: TEDUGLUTIDE
     Dosage: 3.3 MILLIGRAM (0.05 MG/KG DAILY DOSE), 7 DOSES PER WEEK
     Route: 065
     Dates: start: 20170426, end: 201705
  6. TEDUGLUTIDE [Suspect]
     Active Substance: TEDUGLUTIDE
     Dosage: 3.3 MILLIGRAM (0.05 MG/KG DAILY DOSE), 7 DOSES PER WEEK
     Route: 065
     Dates: start: 20170426, end: 201705
  7. TEDUGLUTIDE [Suspect]
     Active Substance: TEDUGLUTIDE
     Dosage: 3.3 MILLIGRAM (0.05 MG/KG DAILY DOSE), 7 DOSES PER WEEK
     Route: 065
     Dates: start: 20170426, end: 201705
  8. TEDUGLUTIDE [Suspect]
     Active Substance: TEDUGLUTIDE
     Dosage: 3.3 MILLIGRAM (0.05 MG/KG DAILY DOSE), 7 DOSES PER WEEK
     Route: 065
     Dates: start: 20170426, end: 201705
  9. CALCIUM CHLORIDE\MAGNESIUM CHLORIDE\POTASSIUM CHLORIDE\SODIUM ACETATE\ [Concomitant]
     Active Substance: CALCIUM CHLORIDE\MAGNESIUM CHLORIDE\POTASSIUM CHLORIDE\SODIUM ACETATE\SODIUM CHLORIDE
     Indication: Product used for unknown indication
  10. PRADAXA [Concomitant]
     Active Substance: DABIGATRAN ETEXILATE MESYLATE
     Indication: Thrombosis prophylaxis
  11. CERTOPARIN SODIUM [Concomitant]
     Active Substance: CERTOPARIN SODIUM
     Indication: Anticoagulant therapy

REACTIONS (1)
  - Vascular device occlusion [Recovered/Resolved]

NARRATIVE: CASE EVENT DATE: 20181009
